FAERS Safety Report 20452237 (Version 1)
Quarter: 2022Q1

REPORT INFORMATION
  Report Type: Spontaneous
  Country: FR (occurrence: FR)
  Receive Date: 20220210
  Receipt Date: 20220210
  Transmission Date: 20220423
  Serious: Yes (Hospitalization, Other)
  Sender: FDA-Public Use
  Company Number: None

PATIENT
  Age: 49 Year
  Sex: Male
  Weight: 77 kg

DRUGS (13)
  1. DOCETAXEL [Suspect]
     Active Substance: DOCETAXEL
     Indication: Oesophageal carcinoma
     Dosage: 3EME CURE
     Route: 041
     Dates: start: 20211230, end: 20211230
  2. FLUOROURACIL [Suspect]
     Active Substance: FLUOROURACIL
     Indication: Oesophageal carcinoma
     Dosage: 3EME CURE
     Route: 041
     Dates: start: 20211230, end: 20211230
  3. OXALIPLATIN [Suspect]
     Active Substance: OXALIPLATIN
     Indication: Oesophageal carcinoma
     Dosage: 3EME CURE
     Route: 041
     Dates: start: 20211230, end: 20211230
  4. PREDNISOLONE ACETATE [Concomitant]
     Active Substance: PREDNISOLONE ACETATE
     Indication: Allergy prophylaxis
     Dosage: AVANT CHIMIO
     Route: 048
  5. EMEND 125 + 80MG HARD CAPSULE [Concomitant]
     Indication: Prophylaxis of nausea and vomiting
     Dosage: BEFORE CHEMO
     Route: 048
  6. ZYMAD 100 000 UI,ORAL SOLUTION IN AMPOULE [Concomitant]
     Indication: Vitamin supplementation
     Route: 048
  7. PANTOPRAZOLE [Concomitant]
     Active Substance: PANTOPRAZOLE
     Indication: Product used for unknown indication
     Route: 048
  8. NYVEPRIA 6 MG, SOLUTION INJECTABLE [Concomitant]
     Indication: Colony stimulating factor therapy
     Dosage: BEFORE CHEMO TREATMENTS
  9. PHOSPHONEUROS, ORAL SOLUTION IN DROPS [Concomitant]
     Indication: Hypophosphataemia
     Route: 048
  10. FERROSTRANE 0.68 PER CENT, SYRUP [Concomitant]
     Indication: Anaemia
     Route: 048
  11. PRINCI B, COATED TABLET [Concomitant]
     Indication: Vitamin supplementation
     Route: 048
  12. METOCLOPRAMIDE HYDROCHLORIDE [Concomitant]
     Active Substance: METOCLOPRAMIDE HYDROCHLORIDE
     Indication: Prophylaxis of nausea and vomiting
     Dosage: BEFORE CHEMO
     Route: 048
  13. ZOPHREN 8 mg, COATED TABLET [Concomitant]
     Indication: Prophylaxis of nausea and vomiting
     Dosage: POST CHEMO
     Route: 048

REACTIONS (1)
  - Pancreatitis acute [Recovering/Resolving]

NARRATIVE: CASE EVENT DATE: 20220105
